FAERS Safety Report 4790449-X (Version None)
Quarter: 2005Q4

REPORT INFORMATION
  Report Type: 
  Country: None (occurrence: None)
  Receive Date: 20051005
  Receipt Date: 20050919
  Transmission Date: 20060501
  Serious: Yes (Death)
  Sender: FDA-Public Use
  Company Number: US_0504116358

PATIENT
  Age: 53 Year
  Sex: Female
  Weight: 136 kg

DRUGS (9)
  1. ZYPREXA [Suspect]
     Indication: BIPOLAR DISORDER
     Dosage: 7.5 MG AT BEDTIME
     Dates: start: 20020724
  2. KLONOPIN [Concomitant]
  3. ATIVAN [Concomitant]
  4. NARDIL [Concomitant]
  5. AMANTADINE [Concomitant]
  6. ABILIFY [Concomitant]
  7. SYNTHROID [Concomitant]
  8. LASIX [Concomitant]
  9. DIOVAN [Concomitant]

REACTIONS (3)
  - DIABETES MELLITUS [None]
  - OBESITY [None]
  - WEIGHT INCREASED [None]
